FAERS Safety Report 21768320 (Version 1)
Quarter: 2022Q4

REPORT INFORMATION
  Report Type: Spontaneous
  Country: US (occurrence: US)
  Receive Date: 20221222
  Receipt Date: 20221222
  Transmission Date: 20230112
  Serious: No
  Sender: FDA-Public Use
  Company Number: US-PERRIGO-22US014041

PATIENT
  Age: 74 Year
  Sex: Female
  Weight: 58.957 kg

DRUGS (5)
  1. NASONEX [Suspect]
     Active Substance: MOMETASONE FUROATE
     Indication: Rhinorrhoea
     Dosage: 100 MCG TO EACH NOSTRIL, SINGLE
     Route: 045
     Dates: start: 20221013, end: 20221013
  2. NASONEX [Suspect]
     Active Substance: MOMETASONE FUROATE
     Indication: Sneezing
  3. NASONEX [Suspect]
     Active Substance: MOMETASONE FUROATE
     Indication: Pruritus
  4. LEVOTHYROXINE [Concomitant]
     Active Substance: LEVOTHYROXINE
     Indication: Thyroidectomy
     Dosage: UNKNOWN, UNKNOWN
     Route: 065
  5. VITAMINS NOS [Concomitant]
     Active Substance: VITAMINS
     Indication: Supplementation therapy
     Dosage: UNKNOWN, UNKNOWN
     Route: 065

REACTIONS (1)
  - Laryngitis [Recovering/Resolving]

NARRATIVE: CASE EVENT DATE: 20221014
